FAERS Safety Report 7342212-3 (Version None)
Quarter: 2011Q1

REPORT INFORMATION
  Report Type: 
  Country: None (occurrence: None)
  Receive Date: 20110310
  Receipt Date: 20110301
  Transmission Date: 20110831
  Serious: Yes (Other)
  Sender: FDA-Public Use
  Company Number: IT-AMGEN-ITASP2011006682

PATIENT
  Age: 62 Year
  Sex: Female

DRUGS (5)
  1. SIVASTIN [Concomitant]
     Dosage: UNK
  2. PLAQUENIL [Suspect]
     Indication: RHEUMATOID ARTHRITIS
     Dosage: 200 MG, 1X/DAY
     Route: 048
     Dates: start: 20090803, end: 20110110
  3. ENAPREN [Concomitant]
     Dosage: UNK
  4. DELTACORTENE [Concomitant]
     Dosage: 10 MG, UNK
  5. ENBREL [Suspect]
     Indication: RHEUMATOID ARTHRITIS
     Dosage: 50 MG, WEEKLY
     Route: 058
     Dates: start: 20081231, end: 20110110

REACTIONS (2)
  - PRURITUS [None]
  - SKIN LESION [None]
